FAERS Safety Report 8487876-6 (Version None)
Quarter: 2012Q2

REPORT INFORMATION
  Report Type: 
  Country: None (occurrence: None)
  Receive Date: 20120402
  Receipt Date: 20110508
  Transmission Date: 20120825
  Serious: Yes (Other)
  Sender: FDA-Public Use
  Company Number: PHHY2011US39695

PATIENT
  Sex: Male

DRUGS (1)
  1. EXFORGE [Suspect]
     Dosage: 1 DF, DAILY (160 MG VALS AND 10 MG AMLO)

REACTIONS (2)
  - SLEEP DISORDER [None]
  - HYPERTENSION [None]
